FAERS Safety Report 17878727 (Version 1)
Quarter: 2020Q2

REPORT INFORMATION
  Report Type: Spontaneous
  Country: IL (occurrence: IL)
  Receive Date: 20200610
  Receipt Date: 20200610
  Transmission Date: 20200714
  Serious: Yes (Hospitalization, Other)
  Sender: FDA-Public Use
  Company Number: IL-SA-2020SA144435

PATIENT

DRUGS (1)
  1. TOUJEO [Suspect]
     Active Substance: INSULIN GLARGINE
     Dosage: 18 IU
     Route: 058

REACTIONS (5)
  - Syncope [Unknown]
  - Fall [Unknown]
  - Gait disturbance [Unknown]
  - Memory impairment [Unknown]
  - Cardiac operation [Unknown]

NARRATIVE: CASE EVENT DATE: 2020
